FAERS Safety Report 17056661 (Version 1)
Quarter: 2019Q4

REPORT INFORMATION
  Report Type: Spontaneous
  Country: CN (occurrence: CN)
  Receive Date: 20191121
  Receipt Date: 20191121
  Transmission Date: 20200122
  Serious: Yes (Other)
  Sender: FDA-Public Use
  Company Number: CN-ROCHE-2467786

PATIENT
  Age: 64 Year
  Sex: Female

DRUGS (8)
  1. MABTHERA [Suspect]
     Active Substance: RITUXIMAB
     Indication: NON-HODGKIN^S LYMPHOMA
     Route: 065
     Dates: start: 20190724
  2. DEXAMETHASONE. [Concomitant]
     Active Substance: DEXAMETHASONE
     Route: 065
     Dates: start: 201907
  3. TIGECYCLINE. [Concomitant]
     Active Substance: TIGECYCLINE
     Route: 065
     Dates: start: 201907
  4. POLYMYXIN [Concomitant]
     Active Substance: POLYMYXIN
     Dosage: 500000 U
     Route: 065
  5. TIGECYCLINE. [Concomitant]
     Active Substance: TIGECYCLINE
     Route: 065
     Dates: start: 20190718
  6. CEFOPERAZONE SODIUM;SULBACTAM SODIUM [Concomitant]
     Route: 065
     Dates: start: 20190718
  7. GEMCITABINE. [Concomitant]
     Active Substance: GEMCITABINE
     Indication: NON-HODGKIN^S LYMPHOMA
     Route: 065
     Dates: start: 20190724
  8. OXALIPLATIN. [Concomitant]
     Active Substance: OXALIPLATIN
     Indication: NON-HODGKIN^S LYMPHOMA
     Route: 065
     Dates: start: 20190724

REACTIONS (5)
  - Gastrointestinal haemorrhage [Recovering/Resolving]
  - Confusional state [Unknown]
  - Haematemesis [Unknown]
  - Melaena [Unknown]
  - Blood pressure decreased [Recovered/Resolved]

NARRATIVE: CASE EVENT DATE: 20190728
